FAERS Safety Report 9327159 (Version 2)
Quarter: 2013Q2

REPORT INFORMATION
  Report Type: Spontaneous
  Country: US (occurrence: None)
  Receive Date: 20130530
  Receipt Date: 20130621
  Transmission Date: 20140414
  Serious: Yes (Hospitalization)
  Sender: FDA-Public Use
  Company Number: 2013-0684

PATIENT
  Age: 73 Year
  Sex: Male

DRUGS (9)
  1. SOMATULINE [Suspect]
     Indication: CARCINOID SYNDROME
     Dosage: 120 MG (120 MG, 1 IN 28 D), SUBCUTANEOUS
     Route: 058
  2. ZOCOR (SIMVASTATIN) [Concomitant]
  3. LISINOPRIL (LISINOPRIL) [Concomitant]
  4. BISOPROLOL (BISOPROLOL) [Concomitant]
  5. AXID (NIZATIDINE) [Concomitant]
  6. VITAMINS (VITAMINS) [Concomitant]
  7. AFINITOR [Concomitant]
  8. CALCIUM (CALCIUM) [Concomitant]
  9. FISH OIL (FISH OIL) [Concomitant]

REACTIONS (11)
  - Cholecystitis infective [None]
  - Sepsis [None]
  - Bile duct obstruction [None]
  - Cholelithiasis [None]
  - Insulin-like growth factor increased [None]
  - Diarrhoea [None]
  - Abdominal pain upper [None]
  - Flatulence [None]
  - Drug dose omission [None]
  - Nausea [None]
  - Inappropriate schedule of drug administration [None]
